FAERS Safety Report 15282491 (Version 2)
Quarter: 2019Q2

REPORT INFORMATION
  Report Type: Spontaneous
  Country: IT (occurrence: IT)
  Receive Date: 20180816
  Receipt Date: 20190606
  Transmission Date: 20190711
  Serious: Yes (Other)
  Sender: FDA-Public Use
  Company Number: IT-AUROBINDO-AUR-APL-2018-040929

PATIENT

DRUGS (1)
  1. ARIPIPRAZOLE. [Suspect]
     Active Substance: ARIPIPRAZOLE
     Indication: SCHIZOPHRENIA
     Dosage: 30 MILLIGRAM, ONCE A DAY
     Route: 048
     Dates: start: 20180526, end: 20180701

REACTIONS (2)
  - Therapy non-responder [Unknown]
  - Schizophrenia [Unknown]

NARRATIVE: CASE EVENT DATE: 20180701
